FAERS Safety Report 20131196 (Version 2)
Quarter: 2022Q2

REPORT INFORMATION
  Report Type: Spontaneous
  Country: US (occurrence: None)
  Receive Date: 20211130
  Receipt Date: 20220603
  Transmission Date: 20220720
  Serious: Yes (Other)
  Sender: FDA-Public Use
  Company Number: 2021A828604

PATIENT
  Age: 45 Year
  Sex: Female
  Weight: 81.6 kg

DRUGS (46)
  1. NEXIUM 24HR [Suspect]
     Active Substance: ESOMEPRAZOLE MAGNESIUM
     Indication: Gastrooesophageal reflux disease
     Route: 048
     Dates: start: 2011, end: 2016
  2. NEXIUM 24HR [Suspect]
     Active Substance: ESOMEPRAZOLE MAGNESIUM
     Indication: Gastrooesophageal reflux disease
     Route: 048
     Dates: start: 2014, end: 2016
  3. PRILOSEC OTC [Suspect]
     Active Substance: OMEPRAZOLE MAGNESIUM
     Indication: Gastrooesophageal reflux disease
     Route: 048
     Dates: start: 2011, end: 2016
  4. PREVACID 24 HR [Suspect]
     Active Substance: LANSOPRAZOLE
     Indication: Gastrooesophageal reflux disease
     Route: 065
     Dates: start: 2011, end: 2016
  5. PANTOPRAZOLE [Suspect]
     Active Substance: PANTOPRAZOLE
     Indication: Gastrooesophageal reflux disease
     Dosage: GENERIC
     Route: 065
     Dates: start: 2013
  6. TORADOL [Concomitant]
     Active Substance: KETOROLAC TROMETHAMINE
     Indication: Analgesic therapy
     Route: 065
     Dates: start: 20101217, end: 20110128
  7. AZITHROMYCIN [Concomitant]
     Active Substance: AZITHROMYCIN
     Indication: Infection
     Route: 065
     Dates: start: 20090210
  8. AZITHROMYCIN [Concomitant]
     Active Substance: AZITHROMYCIN
     Indication: Infection
     Route: 065
     Dates: start: 20090210
  9. AZITHROMYCIN [Concomitant]
     Active Substance: AZITHROMYCIN
     Indication: Infection
     Route: 065
     Dates: start: 2009, end: 2010
  10. AZITHROMYCIN [Concomitant]
     Active Substance: AZITHROMYCIN
     Indication: Infection
     Route: 065
     Dates: start: 2009, end: 2010
  11. KEFLEX [Concomitant]
     Active Substance: CEPHALEXIN
     Indication: Infection
     Route: 065
     Dates: start: 2015
  12. CEFUROXIME [Concomitant]
     Active Substance: CEFUROXIME
     Indication: Infection
     Route: 065
     Dates: start: 2016
  13. CEFTRIAXONE [Concomitant]
     Active Substance: CEFTRIAXONE
     Indication: Urinary tract infection
     Route: 065
     Dates: start: 2012, end: 2016
  14. ROCEPHIN [Concomitant]
     Active Substance: CEFTRIAXONE SODIUM
     Indication: Infection
     Route: 065
     Dates: start: 2009, end: 2016
  15. CIPROFLOXACIN [Concomitant]
     Active Substance: CIPROFLOXACIN
     Indication: Infection
     Route: 065
     Dates: start: 2012, end: 2015
  16. CIPROFLOXACIN [Concomitant]
     Active Substance: CIPROFLOXACIN
     Indication: Infection
     Route: 065
     Dates: start: 2011, end: 2015
  17. LEVOFLOXACIN [Concomitant]
     Active Substance: LEVOFLOXACIN
     Indication: Infection
     Route: 065
     Dates: start: 2015
  18. SULFAMOXOLE/TRIMETHOPRIM [Concomitant]
     Indication: Infection
     Route: 065
     Dates: start: 2012, end: 2016
  19. BACTRIM [Concomitant]
     Active Substance: SULFAMETHOXAZOLE\TRIMETHOPRIM
     Indication: Infection
     Route: 065
     Dates: start: 2012, end: 2016
  20. SEPTRA [Concomitant]
     Active Substance: SULFAMETHOXAZOLE\TRIMETHOPRIM
     Indication: Urinary tract infection
     Route: 065
     Dates: start: 2013
  21. LISINOPRIL [Concomitant]
     Active Substance: LISINOPRIL
     Indication: Oedema
     Route: 065
     Dates: start: 2021
  22. FUROSEMIDE [Concomitant]
     Active Substance: FUROSEMIDE
     Indication: Oedema
     Route: 065
     Dates: start: 2016
  23. ATORVASTATIN [Concomitant]
     Active Substance: ATORVASTATIN
     Indication: Blood cholesterol abnormal
     Route: 065
     Dates: start: 2021
  24. DOXEPIN [Concomitant]
     Active Substance: DOXEPIN
     Indication: Depression
     Route: 065
     Dates: start: 2019
  25. FLUOXETINE [Concomitant]
     Active Substance: FLUOXETINE HYDROCHLORIDE
     Indication: Depression
     Route: 065
     Dates: start: 2013, end: 2020
  26. PROZAC [Concomitant]
     Active Substance: FLUOXETINE HYDROCHLORIDE
     Indication: Depression
     Route: 065
     Dates: start: 2012, end: 2016
  27. TYLENOL [Concomitant]
     Active Substance: ACETAMINOPHEN
     Indication: Pain
     Route: 065
     Dates: start: 2012
  28. VITAMIN C [Concomitant]
     Active Substance: ASCORBIC ACID
     Indication: Routine health maintenance
     Route: 065
     Dates: start: 2020
  29. GINGER [Concomitant]
     Active Substance: GINGER
     Indication: Dyspepsia
     Route: 065
     Dates: start: 2016
  30. PEPCID AC [Concomitant]
     Active Substance: FAMOTIDINE
     Route: 065
  31. ZANTAC [Concomitant]
     Active Substance: RANITIDINE HYDROCHLORIDE
     Route: 065
  32. TUMS [Concomitant]
     Active Substance: CALCIUM CARBONATE
     Route: 065
     Dates: start: 1987, end: 2011
  33. ROLAIDS [Concomitant]
     Active Substance: CALCIUM CARBONATE\MAGNESIUM HYDROXIDE
     Route: 065
     Dates: start: 1987, end: 2011
  34. METHADONE [Concomitant]
     Active Substance: METHADONE HYDROCHLORIDE
  35. MORPHINE [Concomitant]
     Active Substance: MORPHINE
  36. ACETAMINOPHEN [Concomitant]
     Active Substance: ACETAMINOPHEN
  37. BACLOFEN [Concomitant]
     Active Substance: BACLOFEN
  38. IBUPROFEN [Concomitant]
     Active Substance: IBUPROFEN
  39. PROCHLORPERAZINE [Concomitant]
     Active Substance: PROCHLORPERAZINE
  40. VENLAFAXINE [Concomitant]
     Active Substance: VENLAFAXINE HYDROCHLORIDE
  41. MIRTAZAPINE [Concomitant]
     Active Substance: MIRTAZAPINE
  42. PRAZOSIN [Concomitant]
     Active Substance: PRAZOSIN
  43. CLONIDINE [Concomitant]
     Active Substance: CLONIDINE
  44. OLANZAPINE [Concomitant]
     Active Substance: OLANZAPINE
  45. ONDANSETRON [Concomitant]
     Active Substance: ONDANSETRON
  46. BUPROPION [Concomitant]
     Active Substance: BUPROPION

REACTIONS (3)
  - Chronic kidney disease [Not Recovered/Not Resolved]
  - Acute kidney injury [Not Recovered/Not Resolved]
  - Gastrooesophageal reflux disease [Not Recovered/Not Resolved]

NARRATIVE: CASE EVENT DATE: 20120101
